FAERS Safety Report 21210719 (Version 1)
Quarter: 2022Q3

REPORT INFORMATION
  Report Type: Spontaneous
  Country: CN (occurrence: CN)
  Receive Date: 20220815
  Receipt Date: 20220815
  Transmission Date: 20221027
  Serious: Yes (Hospitalization, Other)
  Sender: FDA-Public Use
  Company Number: CN-KYOWAKIRIN-2022BKK012762

PATIENT

DRUGS (4)
  1. FARESTON [Suspect]
     Active Substance: TOREMIFENE CITRATE
     Indication: Invasive ductal breast carcinoma
     Dosage: 60 MG, QD
     Route: 048
     Dates: start: 20200703, end: 20210215
  2. FARESTON [Suspect]
     Active Substance: TOREMIFENE CITRATE
     Dosage: 60 MG
     Route: 048
     Dates: start: 20210301, end: 20220103
  3. LIPITOR [Concomitant]
     Active Substance: ATORVASTATIN CALCIUM
     Indication: Hepatic steatosis
     Dosage: 200 MG, QD
     Route: 048
     Dates: start: 20210301, end: 20211205
  4. FENOFIBRATE [Concomitant]
     Active Substance: FENOFIBRATE
     Indication: Hepatic steatosis
     Dosage: 200 MG, QD
     Route: 048
     Dates: start: 20210301, end: 20211205

REACTIONS (2)
  - Hyperlipidaemia [Recovering/Resolving]
  - Pancreatitis acute [Recovering/Resolving]

NARRATIVE: CASE EVENT DATE: 20210215
